FAERS Safety Report 6155685-9 (Version None)
Quarter: 2009Q2

REPORT INFORMATION
  Report Type: 
  Country: None (occurrence: None)
  Receive Date: 20090415
  Receipt Date: 20090414
  Transmission Date: 20091009
  Serious: Yes (Other)
  Sender: FDA-Public Use
  Company Number: A0778419A

PATIENT
  Sex: Female

DRUGS (2)
  1. LOVAZA [Suspect]
     Dosage: 4G PER DAY
     Route: 048
  2. UNKNOWN [Concomitant]

REACTIONS (3)
  - BLINDNESS [None]
  - DRUG LEVEL INCREASED [None]
  - VISION BLURRED [None]
